FAERS Safety Report 25740577 (Version 1)
Quarter: 2025Q3

REPORT INFORMATION
  Report Type: Spontaneous
  Country: US (occurrence: US)
  Receive Date: 20250829
  Receipt Date: 20250829
  Transmission Date: 20251020
  Serious: No
  Sender: SANOFI AVENTIS
  Company Number: US-SANOFI-02631602

PATIENT
  Age: 67 Year
  Sex: Female

DRUGS (4)
  1. LANTUS SOLOSTAR [Suspect]
     Active Substance: INSULIN GLARGINE
     Indication: Type 2 diabetes mellitus
     Dosage: 35 IU, HS
     Dates: start: 2024
  2. LANTUS SOLOSTAR [Suspect]
     Active Substance: INSULIN GLARGINE
     Dosage: 25 IU, QD
  3. MOUNJARO [Concomitant]
     Active Substance: TIRZEPATIDE
     Dates: end: 202507
  4. OZEMPIC [Concomitant]
     Active Substance: SEMAGLUTIDE

REACTIONS (6)
  - Dyspnoea [Unknown]
  - Blood glucose increased [Unknown]
  - Glycosylated haemoglobin increased [Unknown]
  - Drug ineffective [Unknown]
  - Device use issue [Unknown]
  - Intentional product misuse [Unknown]

NARRATIVE: CASE EVENT DATE: 20250801
